APPROVED DRUG PRODUCT: CEPHALEXIN
Active Ingredient: CEPHALEXIN
Strength: EQ 250MG BASE/5ML
Dosage Form/Route: FOR SUSPENSION;ORAL
Application: A065444 | Product #002
Applicant: HIKMA PHARMACEUTICALS
Approved: Aug 28, 2009 | RLD: No | RS: No | Type: DISCN